FAERS Safety Report 19247950 (Version 1)
Quarter: 2021Q2

REPORT INFORMATION
  Report Type: Spontaneous
  Country: IT (occurrence: IT)
  Receive Date: 20210512
  Receipt Date: 20210512
  Transmission Date: 20210717
  Serious: Yes (Other)
  Sender: FDA-Public Use
  Company Number: IT-SA-2021SA146102

PATIENT
  Sex: Male

DRUGS (2)
  1. APIDRA SOLOSTAR [Suspect]
     Active Substance: INSULIN GLULISINE
     Indication: DIABETES MELLITUS
     Dosage: 8?10 UNITS IN THE MORNING, 12?15 UNITS IN THE AFTERNOON, 10?12 UNITS IN THE EVENING
  2. TOUJEO [Suspect]
     Active Substance: INSULIN GLARGINE
     Indication: DIABETES MELLITUS
     Dosage: 15 IU, QD

REACTIONS (4)
  - Hypoaesthesia [Unknown]
  - Abdominal discomfort [Unknown]
  - Diabetic metabolic decompensation [Unknown]
  - Pruritus [Unknown]
